FAERS Safety Report 9263450 (Version 1)
Quarter: 2013Q2

REPORT INFORMATION
  Report Type: Spontaneous
  Country: US (occurrence: US)
  Receive Date: 20130430
  Receipt Date: 20130430
  Transmission Date: 20140414
  Serious: No
  Sender: FDA-Public Use
  Company Number: US-ABBOTT-13P-163-1073628-00

PATIENT
  Age: 71 Year
  Sex: Male

DRUGS (2)
  1. CREON [Suspect]
     Indication: PRODUCT USED FOR UNKNOWN INDICATION
     Dates: start: 2011
  2. CREON [Suspect]
     Dosage: 12000 UNITS IN EACH CAPSULE
     Dates: start: 201212

REACTIONS (1)
  - Medication residue present [Unknown]
